FAERS Safety Report 6507740-9 (Version None)
Quarter: 2009Q4

REPORT INFORMATION
  Report Type: 
  Country: None (occurrence: None)
  Receive Date: 20091221
  Receipt Date: 20091210
  Transmission Date: 20100525
  Serious: Yes (Other)
  Sender: FDA-Public Use
  Company Number: JP-ASTRAZENECA-2009AP03294

PATIENT
  Age: 51 Year
  Sex: Male

DRUGS (1)
  1. MEROPEN [Suspect]
     Route: 042
     Dates: start: 20080801

REACTIONS (1)
  - OCULOMUCOCUTANEOUS SYNDROME [None]
